FAERS Safety Report 4904314-8 (Version None)
Quarter: 2006Q1

REPORT INFORMATION
  Report Type: 
  Country: None (occurrence: None)
  Receive Date: 20060208
  Receipt Date: 20050822
  Transmission Date: 20060701
  Serious: No
  Sender: FDA-Public Use
  Company Number: US-GLAXOSMITHKLINE-A0571258A

PATIENT
  Age: 60 Year
  Sex: Female

DRUGS (5)
  1. PAXIL [Suspect]
     Indication: MAJOR DEPRESSION
     Route: 048
     Dates: start: 20041001, end: 20050101
  2. PAXIL [Suspect]
     Dosage: 1TAB PER DAY
     Route: 048
     Dates: start: 20050101, end: 20050301
  3. LEVOXYL [Concomitant]
  4. PROZAC [Concomitant]
  5. CRESTOR [Concomitant]

REACTIONS (1)
  - DRUG INEFFECTIVE [None]
